FAERS Safety Report 16278935 (Version 3)
Quarter: 2020Q3

REPORT INFORMATION
  Report Type: Report from Study
  Country: IL (occurrence: IL)
  Receive Date: 20190506
  Receipt Date: 20190514
  Transmission Date: 20201105
  Serious: Yes (Life-Threatening, Hospitalization)
  Sender: FDA-Public Use
  Company Number: IL-009507513-1904ISR007755

PATIENT
  Age: 60 Year
  Sex: Female
  Weight: 66 kg

DRUGS (15)
  1. MK?1454. [Suspect]
     Active Substance: MK-1454
     Indication: ADENOCARCINOMA GASTRIC
     Dosage: 100 MCG, AT ESCALATING FREQUENCIES STARTING WITH Q3W, FOLLOWED BY 2W ON ,1W OFF FOR 2 CYCLES, THEN Q
     Route: 036
     Dates: start: 20190225, end: 20190320
  2. NEXIUM [Concomitant]
     Active Substance: ESOMEPRAZOLE MAGNESIUM
     Indication: DYSPEPSIA
     Dosage: TOTAL DAILY DOSE: 20 MG, PRN
     Route: 048
     Dates: start: 201601
  3. HEXAKAPRON [Concomitant]
     Active Substance: TRANEXAMIC ACID
     Indication: UPPER GASTROINTESTINAL HAEMORRHAGE
     Dosage: 1 GRAM, ONCE
     Route: 042
     Dates: start: 20190414, end: 20190414
  4. MK?1454. [Suspect]
     Active Substance: MK-1454
     Dosage: 100 MCG, AT ESCALATING FREQUENCIES STARTING WITH Q3W, FOLLOWED BY 2W ON ,1W OFF FOR 2 CYCLES, THEN Q
     Route: 036
     Dates: start: 20190408, end: 20190408
  5. PRAMIN [Concomitant]
     Indication: UPPER GASTROINTESTINAL HAEMORRHAGE
     Dosage: 10 MILLIGRAM, BID
     Route: 042
     Dates: start: 20190414, end: 20190414
  6. PEMBROLIZUMAB. [Suspect]
     Active Substance: PEMBROLIZUMAB
     Indication: ADENOCARCINOMA GASTRIC
     Dosage: 200 MILLIGRAM, Q3W
     Route: 042
     Dates: start: 20190225, end: 20190320
  7. ELTROXINE [Concomitant]
     Active Substance: LEVOTHYROXINE
     Indication: HYPOTHYROIDISM
     Dosage: 150 MICROGRAM, QD
     Route: 048
     Dates: start: 199801
  8. NORLIP [Concomitant]
     Indication: HYPERCHYLOMICRONAEMIA
     Dosage: TOTAL DAILY DOSE 200 MILLIGRAM, PRN
     Route: 048
     Dates: start: 201301
  9. PEMBROLIZUMAB. [Suspect]
     Active Substance: PEMBROLIZUMAB
     Dosage: 200 MILLIGRAM, Q3W
     Route: 042
     Dates: start: 20190408, end: 20190408
  10. SERETIDE [Concomitant]
     Active Substance: FLUTICASONE PROPIONATE\SALMETEROL XINAFOATE
     Indication: ASTHMA
     Dosage: TOTAL DAILY DOSE: 1 PUFF, PRN, FORMULATION: INHALANT
     Route: 055
     Dates: start: 200901
  11. BEDODEKA [Concomitant]
     Indication: VITAMIN B12 DEFICIENCY
     Dosage: TOTAL DAILY DOSE: 1000 UG, FREQUENCY: OTHER
     Route: 030
     Dates: start: 199101
  12. OPTALGIN [Concomitant]
     Active Substance: METAMIZOLE
     Indication: TUMOUR PAIN
     Dosage: TOTAL DAILY DOSE 30 GTT DROPS, PRN
     Route: 048
     Dates: start: 201501
  13. PANTOPRAZOLE [Concomitant]
     Active Substance: PANTOPRAZOLE
     Indication: UPPER GASTROINTESTINAL HAEMORRHAGE
     Dosage: 40 MILLIGRAM, ONCE
     Route: 042
     Dates: start: 20190414, end: 20190414
  14. GLUCOMIN [Concomitant]
     Active Substance: METFORMIN HYDROCHLORIDE
     Indication: DIABETES MELLITUS
     Dosage: 850 MILLIGRAM, QD
     Route: 048
     Dates: start: 20190218
  15. STATOR (ROSUVASTATIN CALCIUM) [Concomitant]
     Indication: HYPERCHYLOMICRONAEMIA
     Dosage: TOTAL DAILY DOSE: 40 MILLIGRAM, PRN
     Route: 048
     Dates: start: 201301

REACTIONS (1)
  - Immune thrombocytopenia [Not Recovered/Not Resolved]

NARRATIVE: CASE EVENT DATE: 20190414
